FAERS Safety Report 14652642 (Version 1)
Quarter: 2018Q1

REPORT INFORMATION
  Report Type: Spontaneous
  Country: JP (occurrence: JP)
  Receive Date: 20180319
  Receipt Date: 20180319
  Transmission Date: 20180509
  Serious: Yes (Hospitalization, Other)
  Sender: FDA-Public Use
  Company Number: JP-ACCORD-064568

PATIENT
  Age: 70 Year
  Sex: Male

DRUGS (2)
  1. TS-1 [Suspect]
     Active Substance: GIMERACIL\OTERACIL\TEGAFUR
     Indication: GASTRIC CANCER
     Dosage: DAY 1 TO 21
  2. CISPLATIN. [Suspect]
     Active Substance: CISPLATIN
     Indication: GASTRIC CANCER
     Dosage: 60 MG / M2, DAY 8

REACTIONS (2)
  - Gastric perforation [Unknown]
  - Peritonitis [Unknown]
